FAERS Safety Report 8152411-9 (Version None)
Quarter: 2012Q1

REPORT INFORMATION
  Report Type: 
  Country: None (occurrence: None)
  Receive Date: 20120221
  Receipt Date: 20120216
  Transmission Date: 20120608
  Serious: Yes (Hospitalization, Other)
  Sender: FDA-Public Use
  Company Number: US-AMGEN-USASP2011029534

PATIENT
  Age: 74 Year
  Sex: Male

DRUGS (9)
  1. METOPROLOL TARTRATE [Concomitant]
     Dosage: 150 MG, BID
     Route: 048
  2. NPLATE [Suspect]
     Indication: IDIOPATHIC THROMBOCYTOPENIC PURPURA
     Dosage: 550 MUG, UNK
     Dates: start: 20110416
  3. DIGOXIN [Concomitant]
     Dosage: 125 MUG, UNK
     Route: 048
  4. NEXIUM [Concomitant]
     Indication: GASTROOESOPHAGEAL REFLUX DISEASE
     Dosage: 40 MG, QD
     Route: 048
  5. ATIVAN [Concomitant]
     Dosage: 0.5 MG, BID
     Route: 048
  6. LANTUS [Concomitant]
  7. CARTIA XT [Concomitant]
     Dosage: 360 MG, UNK
     Route: 048
  8. LASIX [Concomitant]
     Indication: BLOOD PRESSURE
  9. CORTICOSTEROIDS [Concomitant]

REACTIONS (9)
  - DEEP VEIN THROMBOSIS [None]
  - RENAL FAILURE ACUTE [None]
  - MENTAL STATUS CHANGES [None]
  - MOBILITY DECREASED [None]
  - CONFUSIONAL STATE [None]
  - DEHYDRATION [None]
  - FALL [None]
  - PNEUMONIA [None]
  - CONSTIPATION [None]
